FAERS Safety Report 5916361-8 (Version None)
Quarter: 2008Q4

REPORT INFORMATION
  Report Type: 
  Country: None (occurrence: None)
  Receive Date: 20081013
  Receipt Date: 20081001
  Transmission Date: 20090506
  Serious: Yes (Other)
  Sender: FDA-Public Use
  Company Number: US-CELGENEUS-163-21880-08100397

PATIENT

DRUGS (1)
  1. REVLIMID [Suspect]
     Route: 048
     Dates: start: 20051128, end: 20060811

REACTIONS (5)
  - LYMPHOPENIA [None]
  - NEUTROPHIL COUNT DECREASED [None]
  - PERIPHERAL MOTOR NEUROPATHY [None]
  - SOMNOLENCE [None]
  - SPEECH DISORDER [None]
